FAERS Safety Report 13583149 (Version 3)
Quarter: 2017Q2

REPORT INFORMATION
  Report Type: Spontaneous
  Country: TR (occurrence: TR)
  Receive Date: 20170525
  Receipt Date: 20170627
  Transmission Date: 20170830
  Serious: Yes (Hospitalization, Other)
  Sender: FDA-Public Use
  Company Number: TR-GILEAD-2017-0273882

PATIENT
  Age: 53 Year
  Sex: Male

DRUGS (6)
  1. EFAVIRENZ [Concomitant]
     Active Substance: EFAVIRENZ
     Indication: HIV ASSOCIATED NEPHROPATHY
  2. ACETYLSALICYLIC ACID [Concomitant]
     Active Substance: ASPIRIN
     Indication: DEEP VEIN THROMBOSIS
  3. PROPANOLOL                         /00030001/ [Concomitant]
     Active Substance: PROPRANOLOL HYDROCHLORIDE
     Indication: ESSENTIAL TREMOR
  4. ENOXAPARIN [Concomitant]
     Active Substance: ENOXAPARIN
  5. RAMIPRIL. [Concomitant]
     Active Substance: RAMIPRIL
     Indication: PROTEINURIA
     Dosage: 5 MG, QD
  6. TRUVADA [Suspect]
     Active Substance: EMTRICITABINE\TENOFOVIR DISOPROXIL FUMARATE
     Indication: PRODUCT USED FOR UNKNOWN INDICATION
     Dosage: UNK
     Route: 065

REACTIONS (10)
  - Productive cough [Unknown]
  - Pyrexia [Unknown]
  - HIV associated nephropathy [Unknown]
  - Myalgia [Unknown]
  - Cough [Unknown]
  - Respiratory distress [Unknown]
  - Vena cava thrombosis [Unknown]
  - Vomiting [Unknown]
  - Nephropathy toxic [Unknown]
  - Pulmonary embolism [Unknown]
